FAERS Safety Report 9416133 (Version 1)
Quarter: 2013Q3

REPORT INFORMATION
  Report Type: Spontaneous
  Country: US (occurrence: None)
  Receive Date: 20130723
  Receipt Date: 20130723
  Transmission Date: 20140515
  Serious: Yes (Disabling)
  Sender: FDA-Public Use
  Company Number: None

PATIENT
  Sex: 0

DRUGS (12)
  1. FLUVOXAMINE MALEATE [Suspect]
     Indication: DEPRESSION
     Dosage: STRENGTH:  50 MG TABS?QUANTITY:  1 FOR 2WKS 2 THEREAFTER?FREQUENCY:  ONCE DAILY 2 WKS TWICE DAILY THERAFTER ?HOW:  BY MOUTH DAILY AT BEDTIME?
     Route: 048
     Dates: start: 20130617, end: 20130625
  2. TRIAMTERENE (HCTZ) [Concomitant]
  3. ATENOLOL [Concomitant]
  4. LEVOTHYROXINE [Concomitant]
  5. ASPIRIN [Concomitant]
  6. LORAZEPAM [Concomitant]
  7. TRIPLE STRENGTH OMEGA COMPLEX [Concomitant]
  8. PANTOTHENIC ACID [Concomitant]
  9. BIOTIN FORTE (FOLIC ACID) [Concomitant]
  10. VIT C [Concomitant]
  11. CENTRUM SILVER [Concomitant]
  12. MAGNESIUM [Concomitant]

REACTIONS (4)
  - Cough [None]
  - Oropharyngeal pain [None]
  - Chest pain [None]
  - Rhinorrhoea [None]
